FAERS Safety Report 10175846 (Version 1)
Quarter: 2014Q2

REPORT INFORMATION
  Report Type: Spontaneous
  Country: US (occurrence: None)
  Receive Date: 20140513
  Receipt Date: 20140513
  Transmission Date: 20141212
  Serious: Yes (Other)
  Sender: FDA-Public Use
  Company Number: 54973 AE # 1534

PATIENT
  Age: 30 Year
  Sex: Male

DRUGS (2)
  1. HYLAND^S NERVE TONIC [Suspect]
     Indication: STRESS
     Dosage: 12 CAPLETS X SEVERAL WKS
  2. XANAX AND LITHIUM [Concomitant]

REACTIONS (4)
  - Disorientation [None]
  - Heart rate increased [None]
  - Syncope [None]
  - Head injury [None]
